FAERS Safety Report 11189643 (Version 6)
Quarter: 2019Q1

REPORT INFORMATION
  Report Type: Spontaneous
  Country: US (occurrence: US)
  Receive Date: 20150615
  Receipt Date: 20190114
  Transmission Date: 20190417
  Serious: Yes (Hospitalization, Other)
  Sender: FDA-Public Use
  Company Number: US-DSJP-DSU-2015-103895

PATIENT

DRUGS (1)
  1. BENICAR [Suspect]
     Active Substance: OLMESARTAN MEDOXOMIL
     Indication: HYPERTENSION
     Dosage: 40 MG, QD
     Route: 048
     Dates: start: 201109, end: 20130217

REACTIONS (15)
  - Gluten sensitivity [Unknown]
  - Hypotension [Unknown]
  - Acute kidney injury [Unknown]
  - Coeliac disease [Unknown]
  - Sprue-like enteropathy [Recovering/Resolving]
  - Lactose intolerance [Unknown]
  - Liver disorder [Unknown]
  - Gastric disorder [Unknown]
  - Atrial fibrillation [Recovered/Resolved]
  - Dizziness [Recovered/Resolved]
  - Malaise [Unknown]
  - Sinus bradycardia [Recovered/Resolved]
  - Irritable bowel syndrome [Unknown]
  - Diverticulum [Unknown]
  - Haemorrhoids [Unknown]

NARRATIVE: CASE EVENT DATE: 2012
